FAERS Safety Report 8736726 (Version 3)
Quarter: 2013Q4

REPORT INFORMATION
  Report Type: Spontaneous
  Country: US (occurrence: US)
  Receive Date: 20120822
  Receipt Date: 20131223
  Transmission Date: 20140711
  Serious: Yes (Hospitalization)
  Sender: FDA-Public Use
  Company Number: US-BAYER-2012-085917

PATIENT
  Age: 27 Year
  Sex: Female
  Weight: 65.76 kg

DRUGS (11)
  1. YAZ [Suspect]
     Indication: CONTRACEPTION
     Dosage: UNK
     Dates: start: 2008, end: 201101
  2. YAZ [Suspect]
     Indication: PREMENSTRUAL SYNDROME
  3. YAZ [Suspect]
     Indication: PREMENSTRUAL SYNDROME
  4. GIANVI [Suspect]
     Indication: CONTRACEPTION
     Dosage: UNK
     Dates: start: 2008, end: 201101
  5. GIANVI [Suspect]
     Indication: PREMENSTRUAL DYSPHORIC DISORDER
  6. GIANVI [Suspect]
     Indication: PREMENSTRUAL SYNDROME
  7. AZITHROMYCIN [Concomitant]
     Dosage: 250 MG, UNK
  8. ZOTEX [Concomitant]
  9. GABAPENTIN [Concomitant]
     Dosage: 100 MG, UNK
  10. PERCOCET [Concomitant]
     Dosage: UNK
     Dates: start: 20101103
  11. ENDOCET [Concomitant]

REACTIONS (9)
  - Cholecystectomy [None]
  - Cholecystitis acute [None]
  - Injury [None]
  - Emotional distress [None]
  - Depression [None]
  - Fear of death [None]
  - Nervousness [None]
  - Chest pain [None]
  - Discomfort [None]
